FAERS Safety Report 10159620 (Version 1)
Quarter: 2014Q2

REPORT INFORMATION
  Report Type: Spontaneous
  Country: US (occurrence: US)
  Receive Date: 20140508
  Receipt Date: 20140508
  Transmission Date: 20141212
  Serious: No
  Sender: FDA-Public Use
  Company Number: US-GLAXOSMITHKLINE-A1017310A

PATIENT
  Age: 42 Year
  Sex: Female
  Weight: 97.7 kg

DRUGS (4)
  1. TYKERB [Suspect]
     Indication: PITUITARY TUMOUR
     Dosage: 1250MG PER DAY
     Route: 048
     Dates: start: 201206
  2. DOSTINEX [Concomitant]
  3. TRAMADOL [Concomitant]
  4. HYDROCHLOROTHIAZIDE [Concomitant]

REACTIONS (4)
  - Rash [Unknown]
  - Diarrhoea [Unknown]
  - Nausea [Unknown]
  - Off label use [Unknown]
